FAERS Safety Report 25510160 (Version 1)
Quarter: 2025Q3

REPORT INFORMATION
  Report Type: Spontaneous
  Country: US (occurrence: US)
  Receive Date: 20250703
  Receipt Date: 20250703
  Transmission Date: 20251021
  Serious: No
  Sender: RADIUS PHARM
  Company Number: US-RADIUS HEALTH INC.-2024US005717

PATIENT
  Sex: Female

DRUGS (2)
  1. TYMLOS [Suspect]
     Active Substance: ABALOPARATIDE
     Indication: Osteoporosis
     Route: 058
     Dates: start: 20240703
  2. RETIN-A MICRO [Concomitant]
     Active Substance: TRETINOIN
     Indication: Product used for unknown indication

REACTIONS (7)
  - Palpitations [Not Recovered/Not Resolved]
  - Injection site bruising [Not Recovered/Not Resolved]
  - Illness [Unknown]
  - Intentional dose omission [Unknown]
  - Product dose omission issue [Recovered/Resolved]
  - Product administered at inappropriate site [Recovered/Resolved]
  - Weight decreased [Not Recovered/Not Resolved]

NARRATIVE: CASE EVENT DATE: 20240101
